FAERS Safety Report 5268564-6 (Version None)
Quarter: 2007Q1

REPORT INFORMATION
  Report Type: 
  Country: None (occurrence: None)
  Receive Date: 20070313
  Receipt Date: 20070227
  Transmission Date: 20070707
  Serious: Yes (Disabling)
  Sender: FDA-Public Use
  Company Number: 2006-151885-NL

PATIENT
  Age: 31 Year
  Sex: Female
  Weight: 67.6 kg

DRUGS (1)
  1. IMPLANON [Suspect]
     Indication: CONTRACEPTION
     Dosage: SUBDERMAL
     Route: 059

REACTIONS (8)
  - ACNE [None]
  - ANXIETY [None]
  - CONDITION AGGRAVATED [None]
  - DEPRESSION [None]
  - FEAR [None]
  - MOOD SWINGS [None]
  - WEIGHT DECREASED [None]
  - WEIGHT INCREASED [None]
